FAERS Safety Report 6068797-5 (Version None)
Quarter: 2009Q1

REPORT INFORMATION
  Report Type: 
  Country: None (occurrence: None)
  Receive Date: 20090206
  Receipt Date: 20090203
  Transmission Date: 20090719
  Serious: Yes (Other)
  Sender: FDA-Public Use
  Company Number: US-ASTRAZENECA-2009UW02174

PATIENT
  Age: 72 Year
  Sex: Female

DRUGS (2)
  1. SYMBICORT [Suspect]
     Indication: DYSPNOEA
     Route: 055
     Dates: start: 20090114, end: 20090121
  2. ADVAIR DISKUS 100/50 [Concomitant]

REACTIONS (1)
  - HEART RATE DECREASED [None]
